FAERS Safety Report 9688000 (Version 2)
Quarter: 2013Q4

REPORT INFORMATION
  Report Type: Spontaneous
  Country: CN (occurrence: CN)
  Receive Date: 20131114
  Receipt Date: 20131209
  Transmission Date: 20140711
  Serious: Yes (Hospitalization, Disabling, Other)
  Sender: FDA-Public Use
  Company Number: CN-ASTELLAS-2013US011738

PATIENT
  Sex: Male

DRUGS (1)
  1. TARCEVA [Suspect]
     Indication: LUNG NEOPLASM MALIGNANT
     Dosage: 1 DF, UID/QD
     Route: 048
     Dates: start: 201309

REACTIONS (5)
  - Spinal cord compression [Unknown]
  - Paraplegia [Unknown]
  - Hypoaesthesia [Unknown]
  - Arthritis bacterial [Unknown]
  - Hypersensitivity [Unknown]
